FAERS Safety Report 12331659 (Version 1)
Quarter: 2016Q2

REPORT INFORMATION
  Report Type: Spontaneous
  Country: CO (occurrence: CO)
  Receive Date: 20160504
  Receipt Date: 20160504
  Transmission Date: 20160815
  Serious: Yes (Other)
  Sender: FDA-Public Use
  Company Number: CO-PFIZER INC-2016234427

PATIENT
  Age: 9 Year
  Sex: Female

DRUGS (1)
  1. GENOTROPIN [Suspect]
     Active Substance: SOMATROPIN
     Indication: TURNER^S SYNDROME
     Dosage: UNK

REACTIONS (3)
  - Cardiac disorder [Not Recovered/Not Resolved]
  - Skin disorder [Not Recovered/Not Resolved]
  - Cardiovascular disorder [Unknown]

NARRATIVE: CASE EVENT DATE: 2014
